FAERS Safety Report 18694213 (Version 1)
Quarter: 2021Q1

REPORT INFORMATION
  Report Type: Spontaneous
  Country: AU (occurrence: AU)
  Receive Date: 20210104
  Receipt Date: 20210104
  Transmission Date: 20210419
  Serious: Yes (Other)
  Sender: FDA-Public Use
  Company Number: AU-BRISTOL-MYERS SQUIBB COMPANY-BMS-2020-111119

PATIENT
  Age: 74 Year
  Sex: Male

DRUGS (4)
  1. KENACORT?A40 [Suspect]
     Active Substance: TRIAMCINOLONE ACETONIDE
     Indication: MACULAR OEDEMA
     Dosage: 40 MG/ML
     Route: 031
  2. CHLORAMPHENICOL [Concomitant]
     Active Substance: CHLORAMPHENICOL
     Indication: POSTOPERATIVE CARE
     Dosage: 0.5 PERCENT, Q6H
     Route: 047
  3. PHENYLEPHRINE HYDROCHLORIDE;PREDNISOLONE ACETATE [Concomitant]
     Indication: POSTOPERATIVE CARE
     Dosage: UNK, Q6H
     Route: 047
  4. KETOROLAC TROMETAMOL NORMON [Concomitant]
     Indication: POSTOPERATIVE CARE
     Dosage: 5 MG/ML, QID Q6H
     Route: 047

REACTIONS (2)
  - Intentional product use issue [Unknown]
  - Chorioretinopathy [Recovering/Resolving]
